FAERS Safety Report 8202360-2 (Version None)
Quarter: 2012Q1

REPORT INFORMATION
  Report Type: 
  Country: None (occurrence: None)
  Receive Date: 20120312
  Receipt Date: 20111010
  Transmission Date: 20120608
  Serious: No
  Sender: FDA-Public Use
  Company Number: US-ABBOTT-11P-163-0836447-00

PATIENT
  Age: 59 Year
  Sex: Female

DRUGS (9)
  1. DEPAKOTE [Suspect]
     Indication: PRODUCT USED FOR UNKNOWN INDICATION
  2. RESTORIL [Concomitant]
     Indication: INSOMNIA
     Dosage: 2 TO 3 DAILY
  3. SEROQUEL [Concomitant]
     Indication: BIPOLAR DISORDER
  4. GEODON [Concomitant]
     Indication: BIPOLAR DISORDER
  5. DILTIAZEM HCL [Concomitant]
     Indication: HEART RATE INCREASED
  6. LISINOPRIL [Concomitant]
     Indication: HYPERTENSION
  7. ACYCLOVIR [Concomitant]
     Indication: HERPES VIRUS INFECTION
  8. HUMIRA [Suspect]
     Indication: PSORIASIS
     Dates: start: 20110510
  9. SIMVASTATIN [Concomitant]
     Indication: BLOOD CHOLESTEROL INCREASED

REACTIONS (3)
  - INJECTION SITE PAIN [None]
  - MOBILITY DECREASED [None]
  - TREMOR [None]
